FAERS Safety Report 9070483 (Version 1)
Quarter: 2013Q1

REPORT INFORMATION
  Report Type: Report from Study
  Country: US (occurrence: US)
  Receive Date: 20130129
  Receipt Date: 20130129
  Transmission Date: 20140127
  Serious: No
  Sender: FDA-Public Use
  Company Number: US-ABBOTT-12P-163-0921494-00

PATIENT
  Age: 18 Year
  Sex: Male

DRUGS (2)
  1. HUMIRA 40 MG/ 0.8 ML PRE-FILLED SYRINGE [Suspect]
     Indication: CROHN^S DISEASE
     Dates: start: 201105
  2. PREVACID [Concomitant]
     Indication: GASTROOESOPHAGEAL REFLUX DISEASE

REACTIONS (12)
  - Gastrooesophageal reflux disease [Unknown]
  - Diarrhoea [Unknown]
  - Alopecia [Unknown]
  - Alopecia [Unknown]
  - Skin exfoliation [Unknown]
  - Rash macular [Unknown]
  - Crohn^s disease [Unknown]
  - Seborrhoeic dermatitis [Unknown]
  - Inappropriate schedule of drug administration [Unknown]
  - Constipation [Unknown]
  - Sensation of foreign body [Unknown]
  - Pruritus [Unknown]
